FAERS Safety Report 9223429 (Version 13)
Quarter: 2016Q2

REPORT INFORMATION
  Report Type: Report from Study
  Country: DE (occurrence: DE)
  Receive Date: 20130410
  Receipt Date: 20160526
  Transmission Date: 20160815
  Serious: Yes (Hospitalization)
  Sender: FDA-Public Use
  Company Number: DE-009507513-1304DEU003589

PATIENT
  Age: 34 Year
  Sex: Female
  Weight: 62.5 kg

DRUGS (11)
  1. RIBAVIRIN. [Suspect]
     Active Substance: RIBAVIRIN
     Indication: CHRONIC HEPATITIS C
     Dosage: 2 DF, QAM
     Route: 048
     Dates: start: 20121120, end: 20130326
  2. RIBAVIRIN. [Suspect]
     Active Substance: RIBAVIRIN
     Dosage: 1 DF, QAM
     Route: 048
     Dates: start: 20130327, end: 20130402
  3. RIBAVIRIN. [Suspect]
     Active Substance: RIBAVIRIN
     Dosage: 2 DF, QPM
     Route: 048
     Dates: start: 20130410, end: 20130520
  4. RIBAVIRIN. [Suspect]
     Active Substance: RIBAVIRIN
     Dosage: 3 DF, QPM
     Route: 048
     Dates: start: 20121120, end: 20130311
  5. RIBAVIRIN. [Suspect]
     Active Substance: RIBAVIRIN
     Dosage: 2 DF, QPM
     Route: 048
     Dates: start: 20130312, end: 20130402
  6. PEGINTERFERON ALFA-2A [Suspect]
     Active Substance: PEGINTERFERON ALFA-2A
     Dosage: 180 MICROGRAM, QW
     Route: 058
     Dates: start: 20130416, end: 20130611
  7. BOCEPREVIR [Suspect]
     Active Substance: BOCEPREVIR
     Indication: CHRONIC HEPATITIS C
     Dosage: 4 DF, TID, MORNING, AFTERNOON, EVENING
     Route: 048
     Dates: start: 20130107, end: 20130618
  8. RIBAVIRIN. [Suspect]
     Active Substance: RIBAVIRIN
     Dosage: 1 DF, QPM
     Route: 048
     Dates: start: 20130521, end: 20130618
  9. PEGINTERFERON ALFA-2A [Suspect]
     Active Substance: PEGINTERFERON ALFA-2A
     Indication: CHRONIC HEPATITIS C
     Dosage: 180 MICROGRAM, QW
     Route: 058
     Dates: start: 20121120, end: 20130402
  10. RIBAVIRIN. [Suspect]
     Active Substance: RIBAVIRIN
     Dosage: 1 DF, QAM
     Route: 048
     Dates: start: 20130410, end: 20130618
  11. PEGINTERFERON ALFA-2A [Suspect]
     Active Substance: PEGINTERFERON ALFA-2A
     Dosage: 90 MICROGRAM, QW
     Route: 058
     Dates: start: 20130409, end: 20130409

REACTIONS (1)
  - Pneumonia [Recovered/Resolved]

NARRATIVE: CASE EVENT DATE: 20130327
